FAERS Safety Report 9018454 (Version 1)
Quarter: 2013Q1

REPORT INFORMATION
  Report Type: Spontaneous
  Country: US (occurrence: None)
  Receive Date: 20130111
  Receipt Date: 20130111
  Transmission Date: 20140127
  Serious: Yes (Hospitalization, Disabling)
  Sender: FDA-Public Use
  Company Number: None

PATIENT
  Age: 55 Year
  Sex: Female
  Weight: 72.58 kg

DRUGS (2)
  1. AMBIEN [Suspect]
     Indication: INSOMNIA
     Dates: start: 20060101, end: 20091101
  2. AMBIEN [Suspect]
     Indication: FIBROMYALGIA
     Dates: start: 20060101, end: 20091101

REACTIONS (3)
  - Somnambulism [None]
  - Road traffic accident [None]
  - Multiple injuries [None]
